FAERS Safety Report 10059739 (Version 1)
Quarter: 2014Q2

REPORT INFORMATION
  Report Type: Spontaneous
  Country: US (occurrence: None)
  Receive Date: 20140402
  Receipt Date: 20140402
  Transmission Date: 20141212
  Serious: Yes (Other)
  Sender: FDA-Public Use
  Company Number: 2014041570

PATIENT
  Age: 33 Year
  Sex: Female

DRUGS (2)
  1. STIMATE [Suspect]
     Dates: start: 2005
  2. HUMATE-P [Suspect]

REACTIONS (1)
  - Hip surgery [None]
